FAERS Safety Report 22119597 (Version 1)
Quarter: 2023Q1

REPORT INFORMATION
  Report Type: Spontaneous
  Country: US (occurrence: None)
  Receive Date: 20230321
  Receipt Date: 20230321
  Transmission Date: 20230417
  Serious: No
  Sender: FDA-Public Use
  Company Number: US-ROCHE-3042242

PATIENT
  Sex: Female
  Weight: 79.904 kg

DRUGS (2)
  1. ERIVEDGE [Suspect]
     Active Substance: VISMODEGIB
     Indication: Basal cell carcinoma
     Route: 048
     Dates: start: 20220104
  2. PLAQUENIL [Concomitant]
     Active Substance: HYDROXYCHLOROQUINE SULFATE
     Indication: Connective tissue disorder
     Dosage: 1 TABLET TWO TIMES A DAY
     Route: 048

REACTIONS (6)
  - Dysgeusia [Not Recovered/Not Resolved]
  - Lip dry [Not Recovered/Not Resolved]
  - Oral pain [Not Recovered/Not Resolved]
  - Sinus operation [Not Recovered/Not Resolved]
  - Headache [Not Recovered/Not Resolved]
  - Nausea [Not Recovered/Not Resolved]
